FAERS Safety Report 9418739 (Version 1)
Quarter: 2013Q3

REPORT INFORMATION
  Report Type: Spontaneous
  Country: US (occurrence: US)
  Receive Date: 20130725
  Receipt Date: 20130725
  Transmission Date: 20140515
  Serious: No
  Sender: FDA-Public Use
  Company Number: US-PFIZER INC-2013215416

PATIENT
  Age: 60 Year
  Sex: Male
  Weight: 190 kg

DRUGS (5)
  1. XELJANZ [Suspect]
     Indication: RHEUMATOID ARTHRITIS
     Dosage: 5 MG, 2X/DAY
     Route: 048
     Dates: start: 20130125
  2. CENTRUM [Concomitant]
     Dosage: UNK
  3. PREDNISONE [Concomitant]
     Dosage: 10 MG, UNK
  4. WELLBUTRIN SR [Concomitant]
     Dosage: 150 MG, UNK
  5. VITAMIN D [Concomitant]
     Dosage: 2000 IU, UNK

REACTIONS (1)
  - Muscle spasms [Unknown]
